FAERS Safety Report 7341576-4 (Version None)
Quarter: 2011Q1

REPORT INFORMATION
  Report Type: 
  Country: None (occurrence: None)
  Receive Date: 20110309
  Receipt Date: 20110303
  Transmission Date: 20110831
  Serious: Yes (Life-Threatening)
  Sender: FDA-Public Use
  Company Number: IE-ROXANE LABORATORIES, INC.-2011-RO-00251RO

PATIENT
  Age: 25 Year
  Sex: Female

DRUGS (1)
  1. MORPHINE [Suspect]
     Dosage: 150 MG
     Route: 037

REACTIONS (1)
  - MENINGITIS HERPES [None]
